FAERS Safety Report 7039728-6 (Version None)
Quarter: 2010Q4

REPORT INFORMATION
  Report Type: 
  Country: None (occurrence: None)
  Receive Date: 20101012
  Receipt Date: 20091124
  Transmission Date: 20110411
  Serious: No
  Sender: FDA-Public Use
  Company Number: US-MYLANLABS-2008S1020629

PATIENT
  Age: 53 Year
  Sex: Female
  Weight: 95.26 kg

DRUGS (3)
  1. BROMOCRIPTINE MESYLATE [Suspect]
     Indication: HYPERPROLACTINAEMIA
     Route: 048
     Dates: start: 20081105
  2. LEVOXYL [Concomitant]
     Indication: HYPOTHYROIDISM
     Route: 048
     Dates: start: 19980101
  3. MULTIVITAMIN /00097801/ [Concomitant]
     Route: 048

REACTIONS (4)
  - MALAISE [None]
  - NASAL CONGESTION [None]
  - NAUSEA [None]
  - REACTION TO DRUG EXCIPIENTS [None]
